FAERS Safety Report 6881888-1 (Version None)
Quarter: 2010Q3

REPORT INFORMATION
  Report Type: 
  Country: None (occurrence: None)
  Receive Date: 20100729
  Receipt Date: 20100707
  Transmission Date: 20110219
  Serious: Yes (Other)
  Sender: FDA-Public Use
  Company Number: US-WYE-H16319810

PATIENT
  Sex: Female

DRUGS (1)
  1. EFFEXOR XR [Suspect]
     Indication: DEPRESSION
     Route: 048

REACTIONS (6)
  - AFFECT LABILITY [None]
  - DRUG WITHDRAWAL SYNDROME [None]
  - GENERALISED OEDEMA [None]
  - HYPERSOMNIA [None]
  - MOOD ALTERED [None]
  - SUICIDAL IDEATION [None]
